FAERS Safety Report 4893704-8 (Version None)
Quarter: 2006Q1

REPORT INFORMATION
  Report Type: 
  Country: None (occurrence: None)
  Receive Date: 20060127
  Receipt Date: 20050921
  Transmission Date: 20060701
  Serious: Yes (Life-Threatening, Hospitalization, Disabling)
  Sender: FDA-Public Use
  Company Number: CA-GLAXOSMITHKLINE-A0575671A

PATIENT
  Sex: Male

DRUGS (3)
  1. AVANDIA [Suspect]
     Route: 065
     Dates: start: 20041111, end: 20050725
  2. METFORMIN [Concomitant]
     Dosage: 3000MG PER DAY
     Dates: start: 19991001
  3. CRESTOR [Concomitant]
     Dosage: 10MG PER DAY
     Dates: start: 20010725

REACTIONS (2)
  - DYSPNOEA EXACERBATED [None]
  - PULMONARY FIBROSIS [None]
